FAERS Safety Report 8555947-1 (Version None)
Quarter: 2012Q3

REPORT INFORMATION
  Report Type: 
  Country: None (occurrence: None)
  Receive Date: 20120801
  Receipt Date: 20120723
  Transmission Date: 20120928
  Serious: No
  Sender: FDA-Public Use
  Company Number: US-009507513-1207USA009977

PATIENT

DRUGS (2)
  1. VYTORIN [Suspect]
     Route: 048
  2. NAPROXEN (ALEVE) [Suspect]
     Dosage: 1 TABLET, PRN
     Route: 048

REACTIONS (2)
  - INITIAL INSOMNIA [None]
  - SOMNOLENCE [None]
